FAERS Safety Report 22308604 (Version 1)
Quarter: 2023Q2

REPORT INFORMATION
  Report Type: Spontaneous
  Country: US (occurrence: None)
  Receive Date: 20230511
  Receipt Date: 20230511
  Transmission Date: 20230721
  Serious: No
  Sender: FDA-Public Use
  Company Number: US-ROCHE-3269803

PATIENT
  Age: 70 Year
  Sex: Female

DRUGS (1)
  1. OCREVUS [Suspect]
     Active Substance: OCRELIZUMAB
     Indication: Multiple sclerosis
     Dosage: REPORTER 2 STATES SHE THINKS THE PATIENT STARTED IT IN 2019.
     Route: 042

REACTIONS (5)
  - Hyperhidrosis [Unknown]
  - Blood pressure increased [Unknown]
  - Dizziness [Unknown]
  - Dizziness [Unknown]
  - Tremor [Unknown]
